FAERS Safety Report 4445853-6 (Version None)
Quarter: 2004Q3

REPORT INFORMATION
  Report Type: 
  Country: None (occurrence: None)
  Receive Date: 20040910
  Receipt Date: 20040907
  Transmission Date: 20050211
  Serious: Yes (Hospitalization)
  Sender: FDA-Public Use
  Company Number: PHRM2004FR02714

PATIENT
  Age: 46 Year
  Sex: Female
  Weight: 56 kg

DRUGS (7)
  1. ZOMETA [Suspect]
     Indication: HYPERCALCAEMIA OF MALIGNANCY
     Dosage: 4 MG, QW
     Route: 042
     Dates: start: 20040610, end: 20040810
  2. ORACILLINE [Concomitant]
  3. ACTRAPID HUMAN [Concomitant]
  4. NOVOMIX [Concomitant]
  5. EFFEXOR [Concomitant]
  6. RIVOTRIL [Concomitant]
  7. TOPALGIC ^HOUDE^ [Concomitant]

REACTIONS (3)
  - ECHOGRAPHY ABNORMAL [None]
  - RENAL FAILURE ACUTE [None]
  - THROMBOCYTHAEMIA [None]
